FAERS Safety Report 17662920 (Version 2)
Quarter: 2020Q2

REPORT INFORMATION
  Report Type: Spontaneous
  Country: US (occurrence: US)
  Receive Date: 20200413
  Receipt Date: 20200430
  Transmission Date: 20200713
  Serious: Yes (Other)
  Sender: FDA-Public Use
  Company Number: US-PFIZER INC-2020149414

PATIENT
  Age: 69 Year
  Sex: Female
  Weight: 78.47 kg

DRUGS (1)
  1. AROMASIN [Suspect]
     Active Substance: EXEMESTANE
     Indication: BREAST CANCER FEMALE
     Dosage: UNK, 1X/DAY
     Route: 048

REACTIONS (2)
  - Second primary malignancy [Unknown]
  - Polycythaemia vera [Unknown]
